FAERS Safety Report 12246512 (Version 3)
Quarter: 2017Q1

REPORT INFORMATION
  Report Type: Report from Study
  Country: CA (occurrence: CA)
  Receive Date: 20160407
  Receipt Date: 20170111
  Transmission Date: 20170428
  Serious: Yes (Hospitalization, Other)
  Sender: FDA-Public Use
  Company Number: CA-GILEAD-2016-0207105

PATIENT
  Age: 12 Year
  Sex: Female

DRUGS (3)
  1. COLISTIN [Concomitant]
     Active Substance: COLISTIN
  2. PULMOZYME [Concomitant]
     Active Substance: DORNASE ALFA
  3. CAYSTON [Suspect]
     Active Substance: AZTREONAM
     Indication: CYSTIC FIBROSIS
     Dosage: UNK
     Route: 055
     Dates: start: 20150821

REACTIONS (4)
  - Cystic fibrosis [Unknown]
  - Device malfunction [Unknown]
  - Off label use [Unknown]
  - Incorrect dose administered by device [Unknown]
